FAERS Safety Report 13928791 (Version 2)
Quarter: 2017Q3

REPORT INFORMATION
  Report Type: Report from Study
  Country: IT (occurrence: IT)
  Receive Date: 20170901
  Receipt Date: 20170926
  Transmission Date: 20171127
  Serious: Yes (Death, Hospitalization, Other)
  Sender: FDA-Public Use
  Company Number: IT-AMGEN-ITANI2017109908

PATIENT
  Age: 74 Year
  Sex: Male
  Weight: 54 kg

DRUGS (2)
  1. FOLFOX [Concomitant]
     Active Substance: FLUOROURACIL\LEUCOVORIN CALCIUM\OXALIPLATIN
     Indication: COLORECTAL CANCER METASTATIC
     Dosage: UNK
     Route: 042
     Dates: start: 20170601, end: 20170616
  2. PANITUMUMAB [Suspect]
     Active Substance: PANITUMUMAB
     Indication: COLORECTAL CANCER METASTATIC
     Dosage: 6 MG/KG (324 MG TOTAL), TWICE/MONTH
     Route: 042
     Dates: start: 20170601, end: 20170616

REACTIONS (8)
  - Diarrhoea [Recovered/Resolved]
  - Asthenia [Fatal]
  - Thrombocytopenia [Recovering/Resolving]
  - Paraesthesia [Recovering/Resolving]
  - Constipation [Recovering/Resolving]
  - Nausea [Recovering/Resolving]
  - Decreased appetite [Fatal]
  - Vomiting [Fatal]

NARRATIVE: CASE EVENT DATE: 20170616
